FAERS Safety Report 11231590 (Version 1)
Quarter: 2015Q2

REPORT INFORMATION
  Report Type: Spontaneous
  Country: US (occurrence: None)
  Receive Date: 20150629
  Receipt Date: 20150629
  Transmission Date: 20150821
  Serious: No
  Sender: FDA-Public Use
  Company Number: None

PATIENT
  Age: 43 Year
  Sex: Female
  Weight: 56.7 kg

DRUGS (1)
  1. LYRICA [Suspect]
     Active Substance: PREGABALIN
     Indication: POST HERPETIC NEURALGIA
     Dosage: 1C BID?TWICE DAILY?ORAL
     Route: 048
     Dates: start: 20150605, end: 20150628

REACTIONS (1)
  - Amenorrhoea [None]

NARRATIVE: CASE EVENT DATE: 20150605
